FAERS Safety Report 9008956 (Version 1)
Quarter: 2013Q1

REPORT INFORMATION
  Report Type: Report from Study
  Country: NL (occurrence: NL)
  Receive Date: 20130111
  Receipt Date: 20130111
  Transmission Date: 20140127
  Serious: Yes (Hospitalization)
  Sender: FDA-Public Use
  Company Number: NL-BAXTER-2013BAX000678

PATIENT
  Age: 51 Year
  Sex: Female
  Weight: 60 kg

DRUGS (13)
  1. ENDOXAN I.V., POEDER VOOR OPLOSSING VOOR INJECTIE 200, 500, 1000 MG [Suspect]
     Indication: DIFFUSE LARGE B-CELL LYMPHOMA
     Route: 042
     Dates: start: 20110404
  2. ENDOXAN I.V., POEDER VOOR OPLOSSING VOOR INJECTIE 200, 500, 1000 MG [Suspect]
     Route: 042
     Dates: start: 20110614
  3. RITUXIMAB [Suspect]
     Indication: DIFFUSE LARGE B-CELL LYMPHOMA
     Route: 042
     Dates: start: 20110404
  4. RITUXIMAB [Suspect]
     Route: 042
     Dates: start: 20110614
  5. DOXORUBICIN [Suspect]
     Indication: DIFFUSE LARGE B-CELL LYMPHOMA
     Route: 042
     Dates: start: 20110404
  6. DOXORUBICIN [Suspect]
     Route: 042
     Dates: start: 20110614
  7. PREDNISONE [Suspect]
     Indication: DIFFUSE LARGE B-CELL LYMPHOMA
     Route: 048
     Dates: start: 20110404
  8. PREDNISONE [Suspect]
     Route: 048
     Dates: start: 20110408
  9. PREDNISONE [Suspect]
     Route: 048
     Dates: start: 20110614
  10. PEGFILGRASTIM [Suspect]
     Indication: DIFFUSE LARGE B-CELL LYMPHOMA
     Route: 058
     Dates: start: 20110407, end: 20110407
  11. PEGFILGRASTIM [Suspect]
     Route: 058
     Dates: start: 20110617, end: 20110617
  12. VINCRISTINE [Suspect]
     Indication: DIFFUSE LARGE B-CELL LYMPHOMA
     Route: 042
     Dates: start: 20110404
  13. VINCRISTINE [Suspect]
     Route: 042
     Dates: start: 20110614

REACTIONS (2)
  - Pleural effusion [Recovered/Resolved]
  - Pleural effusion [Recovered/Resolved with Sequelae]
